FAERS Safety Report 4546378-X (Version None)
Quarter: 2005Q1

REPORT INFORMATION
  Report Type: 
  Country: None (occurrence: None)
  Receive Date: 20050103
  Receipt Date: 20041228
  Transmission Date: 20050727
  Serious: Yes (Death, Life-Threatening)
  Sender: FDA-Public Use
  Company Number: 2004118269

PATIENT
  Age: 66 Year
  Sex: Male

DRUGS (1)
  1. ESTRAMUSTINE PHOSPHATE SODIUM CAPSULE (ESTRAMUSTINE PHOSPHATE SODIUM) [Suspect]
     Indication: RECTAL CANCER
     Dosage: 420 MG (140 MG, TID EVERY DAY), ORAL
     Route: 048
     Dates: start: 20040906, end: 20041101

REACTIONS (2)
  - PROSTATE CANCER [None]
  - THROMBOCYTOPENIA [None]
